FAERS Safety Report 23064512 (Version 7)
Quarter: 2023Q4

REPORT INFORMATION
  Report Type: Spontaneous
  Country: US (occurrence: US)
  Receive Date: 20231013
  Receipt Date: 20231212
  Transmission Date: 20240110
  Serious: No
  Sender: FDA-Public Use
  Company Number: US-PFIZER INC-PV202300168154

PATIENT
  Sex: Female

DRUGS (1)
  1. ZAVZPRET [Suspect]
     Active Substance: ZAVEGEPANT HYDROCHLORIDE
     Indication: Migraine
     Dosage: UNK
     Route: 045

REACTIONS (12)
  - Therapeutic product effect incomplete [Unknown]
  - Drug ineffective [Unknown]
  - Rhinorrhoea [Unknown]
  - Condition aggravated [Unknown]
  - Dysgeusia [Unknown]
  - Throat irritation [Unknown]
  - Tooth disorder [Unknown]
  - Endocrine disorder [Unknown]
  - Vomiting [Unknown]
  - Sinus pain [Unknown]
  - Oropharyngeal pain [Unknown]
  - Wrong technique in product usage process [Unknown]
